FAERS Safety Report 9609634 (Version 2)
Quarter: 2013Q4

REPORT INFORMATION
  Report Type: Spontaneous
  Country: US (occurrence: US)
  Receive Date: 20131009
  Receipt Date: 20131009
  Transmission Date: 20140711
  Serious: No
  Sender: FDA-Public Use
  Company Number: US-PURDUE-USA-2012-0095300

PATIENT
  Sex: Female

DRUGS (1)
  1. BUTRANS [Suspect]
     Indication: PAIN
     Dosage: 15 MCG, (10MCG AND 5MCG PATCH AT THE SAME TIME)
     Route: 062

REACTIONS (5)
  - Extra dose administered [Not Recovered/Not Resolved]
  - Drug administration error [Unknown]
  - Drug effect decreased [Unknown]
  - Nausea [Unknown]
  - Drug ineffective [Unknown]
